FAERS Safety Report 18460666 (Version 1)
Quarter: 2020Q4

REPORT INFORMATION
  Report Type: Spontaneous
  Country: US (occurrence: US)
  Receive Date: 20201103
  Receipt Date: 20201103
  Transmission Date: 20210114
  Serious: Yes (Other)
  Sender: FDA-Public Use
  Company Number: US-ROCHE-2707545

PATIENT
  Age: 53 Year
  Sex: Female
  Weight: 82.17 kg

DRUGS (4)
  1. OCREVUS [Suspect]
     Active Substance: OCRELIZUMAB
     Route: 042
     Dates: start: 20201030
  2. OCREVUS [Suspect]
     Active Substance: OCRELIZUMAB
     Indication: RELAPSING-REMITTING MULTIPLE SCLEROSIS
     Dosage: FIRST HALF DOSE OF 300 MG THEN TWO WEEKS LATER OTHER 300 MG?300 MG IN 2 WEEKS AND THEN 600 MG IN 6 M
     Route: 042
     Dates: start: 202004
  3. MODAFINIL. [Concomitant]
     Active Substance: MODAFINIL
     Indication: FATIGUE
     Dates: end: 2020
  4. MODAFINIL. [Concomitant]
     Active Substance: MODAFINIL
     Dates: start: 2020

REACTIONS (1)
  - Multiple sclerosis relapse [Not Recovered/Not Resolved]

NARRATIVE: CASE EVENT DATE: 202010
